FAERS Safety Report 11099212 (Version 1)
Quarter: 2015Q2

REPORT INFORMATION
  Report Type: Report from Study
  Country: IT (occurrence: IT)
  Receive Date: 20150508
  Receipt Date: 20150508
  Transmission Date: 20150821
  Serious: Yes (Death, Other)
  Sender: FDA-Public Use
  Company Number: IT-ACCORD-030609

PATIENT
  Age: 22 Month
  Sex: Female

DRUGS (5)
  1. DOXORUBICIN [Suspect]
     Active Substance: DOXORUBICIN
     Indication: CHOROID PLEXUS CARCINOMA
     Dosage: ON DAY 1AND 2
  2. CYCLOPHOSPHAMIDE/CYCLOPHOSPHAMIDE MONOHYDRATE [Suspect]
     Active Substance: CYCLOPHOSPHAMIDE
     Indication: CHOROID PLEXUS CARCINOMA
     Dosage: ON DAY 1
  3. ETOPOSIDE. [Suspect]
     Active Substance: ETOPOSIDE
     Indication: CHOROID PLEXUS CARCINOMA
     Dosage: ON DAY 1
  4. CARBOPLATIN. [Suspect]
     Active Substance: CARBOPLATIN
     Indication: CHOROID PLEXUS CARCINOMA
     Dosage: ON DAY 1 AND 2
  5. METHOTREXATE [Suspect]
     Active Substance: METHOTREXATE
     Indication: CHOROID PLEXUS CARCINOMA
     Dosage: ON DAY 1

REACTIONS (3)
  - No therapeutic response [Unknown]
  - Neoplasm progression [Fatal]
  - Off label use [Unknown]
